FAERS Safety Report 6122656-8 (Version None)
Quarter: 2009Q1

REPORT INFORMATION
  Report Type: 
  Country: None (occurrence: None)
  Receive Date: 20090318
  Receipt Date: 20090306
  Transmission Date: 20090719
  Serious: Yes (Hospitalization, Other)
  Sender: FDA-Public Use
  Company Number: PHHY2009JP06840

PATIENT
  Age: 62 Year
  Sex: Male

DRUGS (4)
  1. TEGRETOL [Suspect]
     Indication: SCHIZOPHRENIA
     Dosage: UNK
  2. LIMAS [Suspect]
     Indication: SCHIZOPHRENIA
     Dosage: UNK
  3. ATROPINE [Concomitant]
     Dosage: UNK
  4. ISOPROTERENOL [Concomitant]
     Dosage: UNK

REACTIONS (13)
  - ALTERED STATE OF CONSCIOUSNESS [None]
  - ARRHYTHMIA [None]
  - ATRIAL FIBRILLATION [None]
  - BLOOD PRESSURE FLUCTUATION [None]
  - BRADYCARDIA [None]
  - CARDIAC PACEMAKER INSERTION [None]
  - DIALYSIS [None]
  - HEART RATE DECREASED [None]
  - HEART RATE IRREGULAR [None]
  - HYPERKALAEMIA [None]
  - HYPOTENSION [None]
  - PO2 DECREASED [None]
  - SICK SINUS SYNDROME [None]
